FAERS Safety Report 5613954-2 (Version None)
Quarter: 2008Q1

REPORT INFORMATION
  Report Type: 
  Country: None (occurrence: None)
  Receive Date: 20080129
  Receipt Date: 20080111
  Transmission Date: 20080703
  Serious: Yes (Hospitalization)
  Sender: FDA-Public Use
  Company Number: 2008EU000084

PATIENT
  Age: 45 Year
  Sex: Male

DRUGS (5)
  1. PROGRAF [Suspect]
     Indication: LIVER TRANSPLANT
     Dosage: 1 MG, BID, ORAL
     Route: 048
     Dates: start: 20071001
  2. NORVIR [Suspect]
     Dosage: 100 MG, BID,
     Dates: start: 20071022, end: 20071213
  3. FUZEON [Suspect]
     Dosage: 1 DF, BID, SUBCUTANEOUS
     Route: 058
     Dates: start: 20071022, end: 20071213
  4. PREZISTA [Suspect]
     Dosage: 300 MG, ORAL
     Route: 048
     Dates: start: 20071022, end: 20071213
  5. ISENTRESS [Suspect]
     Dosage: 1 DF, BID, ORAL
     Route: 048
     Dates: start: 20071022, end: 20071213

REACTIONS (8)
  - CD4 LYMPHOCYTES DECREASED [None]
  - CHOLESTASIS [None]
  - DRUG INEFFECTIVE [None]
  - HEPATIC NECROSIS [None]
  - HEPATITIS C [None]
  - HEPATOCELLULAR INJURY [None]
  - MYELOCYTOSIS [None]
  - RENAL FAILURE [None]
